FAERS Safety Report 19795080 (Version 1)
Quarter: 2021Q3

REPORT INFORMATION
  Report Type: Spontaneous
  Country: CH (occurrence: CH)
  Receive Date: 20210907
  Receipt Date: 20210907
  Transmission Date: 20211014
  Serious: Yes (Life-Threatening, Hospitalization, Other)
  Sender: FDA-Public Use
  Company Number: CH-ORION CORPORATION ORION PHARMA-21_00015638

PATIENT
  Age: 73 Year
  Sex: Female
  Weight: 79 kg

DRUGS (10)
  1. METHOTREXATE. [Suspect]
     Active Substance: METHOTREXATE
     Indication: RHEUMATOID ARTHRITIS
     Dosage: LONGTERM.?WEDNESDAYS
     Route: 065
     Dates: end: 20210705
  2. PONSTAN [Concomitant]
     Active Substance: MEFENAMIC ACID
     Dosage: 500 MG, PRN
     Route: 065
  3. COMILORID [Concomitant]
     Active Substance: HYDROCHLOROTHIAZIDE
     Dosage: 5/50MG (BUT DOES NOT TAKE IT)
     Route: 065
  4. LEUCOVORINE CALCIUM [Interacting]
     Active Substance: LEUCOVORIN CALCIUM
     Indication: PROPHYLAXIS
     Dosage: 7.5  MG 1X/WEEK (0.5 PCR OF 15 MG) ?HALF A TABLET ON SUNDAYS
     Route: 048
     Dates: end: 202107
  5. PANTOPRAZOLE [Concomitant]
     Active Substance: PANTOPRAZOLE
     Route: 065
  6. PROLIA [Concomitant]
     Active Substance: DENOSUMAB
     Dosage: 60 MG/ML ONE INJECTION
     Route: 065
  7. CONCOR [Concomitant]
     Active Substance: BISOPROLOL FUMARATE
     Route: 065
  8. ASPIRIN CARDIO [Concomitant]
     Active Substance: ASPIRIN
     Route: 065
  9. XELODA [Interacting]
     Active Substance: CAPECITABINE
     Indication: BREAST CANCER METASTATIC
     Dosage: PER DAY IN 2 DOSES
     Route: 048
     Dates: start: 20210722, end: 20210726
  10. IMUREK [Interacting]
     Active Substance: AZATHIOPRINE
     Indication: RHEUMATOID ARTHRITIS
     Dosage: LONGTERM. ?50 MG, 2?0?0
     Route: 048
     Dates: end: 20210705

REACTIONS (7)
  - Stomatitis [Recovering/Resolving]
  - Drug interaction [Unknown]
  - Pancytopenia [Recovered/Resolved]
  - Lip swelling [Recovering/Resolving]
  - Agranulocytosis [Recovered/Resolved]
  - Toxicity to various agents [Recovering/Resolving]
  - Altered state of consciousness [Recovering/Resolving]

NARRATIVE: CASE EVENT DATE: 20210726
